FAERS Safety Report 6429811-8 (Version None)
Quarter: 2009Q4

REPORT INFORMATION
  Report Type: 
  Country: None (occurrence: None)
  Receive Date: 20091103
  Receipt Date: 20091020
  Transmission Date: 20100525
  Serious: Yes (Other)
  Sender: FDA-Public Use
  Company Number: CERZ-1000988

PATIENT
  Age: 40 Year
  Sex: Male
  Weight: 68 kg

DRUGS (2)
  1. CEREZYME [Suspect]
     Indication: GAUCHER'S DISEASE
     Dosage: 60 U/KG, Q2W; INTRAVENOUS
     Route: 042
     Dates: start: 20040907, end: 20090508
  2. CLONAZEPAM [Concomitant]

REACTIONS (5)
  - ARTHRALGIA [None]
  - DISEASE PROGRESSION [None]
  - GAIT DISTURBANCE [None]
  - GAUCHER'S DISEASE [None]
  - PARKINSONISM [None]
